FAERS Safety Report 10032253 (Version 3)
Quarter: 2014Q2

REPORT INFORMATION
  Report Type: Spontaneous
  Country: US (occurrence: US)
  Receive Date: 20140324
  Receipt Date: 20140624
  Transmission Date: 20141212
  Serious: Yes (Life-Threatening, Hospitalization, Other)
  Sender: FDA-Public Use
  Company Number: US-ELI_LILLY_AND_COMPANY-US201403006347

PATIENT
  Age: 49 Year
  Sex: Female
  Weight: 92.52 kg

DRUGS (5)
  1. TERIPARATIDE [Suspect]
     Indication: BLOOD CALCIUM DECREASED
     Dosage: 20 UG, BID
     Route: 058
     Dates: start: 2012
  2. TERIPARATIDE [Suspect]
     Indication: PARATHYROIDECTOMY
     Dosage: 20 UG, BID
     Route: 058
  3. TERIPARATIDE [Suspect]
     Indication: OSTEOPOROSIS
  4. LEVOXYL [Concomitant]
     Indication: PRODUCT USED FOR UNKNOWN INDICATION
     Route: 065
  5. VITAMIN D                          /00107901/ [Concomitant]
     Indication: PRODUCT USED FOR UNKNOWN INDICATION
     Dosage: 50000 U, WEEKLY (1/W)
     Route: 065

REACTIONS (5)
  - Blood calcium decreased [Not Recovered/Not Resolved]
  - Pulmonary embolism [Recovered/Resolved]
  - Dyspnoea [Recovered/Resolved]
  - Drug dose omission [Unknown]
  - Overdose [Unknown]
